FAERS Safety Report 6347499-1 (Version None)
Quarter: 2009Q3

REPORT INFORMATION
  Report Type: 
  Country: None (occurrence: None)
  Receive Date: 20090910
  Receipt Date: 20090902
  Transmission Date: 20100115
  Serious: Yes (Other)
  Sender: FDA-Public Use
  Company Number: IT-BAXTER-2009BH013698

PATIENT

DRUGS (2)
  1. IMMUNE GLOBULIN INTRAVENOUS (HUMAN) [Suspect]
     Indication: NERVOUS SYSTEM DISORDER
     Route: 065
  2. IMMUNE GLOBULIN INTRAVENOUS (HUMAN) [Suspect]
     Indication: OFF LABEL USE
     Route: 065

REACTIONS (1)
  - ANAPHYLACTIC REACTION [None]
